FAERS Safety Report 25526691 (Version 1)
Quarter: 2025Q3

REPORT INFORMATION
  Report Type: Spontaneous
  Country: NZ (occurrence: NZ)
  Receive Date: 20250707
  Receipt Date: 20250707
  Transmission Date: 20251020
  Serious: Yes (Other)
  Sender: ABBVIE
  Company Number: NZ-LUNDBECK-DKLU4016313

PATIENT

DRUGS (1)
  1. ESCITALOPRAM [Suspect]
     Active Substance: ESCITALOPRAM OXALATE
     Indication: Product used for unknown indication
     Route: 048

REACTIONS (10)
  - Suicide attempt [Unknown]
  - Mania [Unknown]
  - Cognitive disorder [Unknown]
  - Psychotic disorder [Unknown]
  - Fatigue [Unknown]
  - Akathisia [Unknown]
  - Withdrawal syndrome [Unknown]
  - Major depression [Unknown]
  - Conversion disorder [Unknown]
  - Amnesia [Unknown]
